FAERS Safety Report 6923048-1 (Version None)
Quarter: 2010Q3

REPORT INFORMATION
  Report Type: 
  Country: None (occurrence: None)
  Receive Date: 20100813
  Receipt Date: 20100805
  Transmission Date: 20110219
  Serious: Yes (Other)
  Sender: FDA-Public Use
  Company Number: DE-AMGEN-QUU429995

PATIENT

DRUGS (2)
  1. VECTIBIX [Suspect]
     Indication: COLORECTAL CANCER
     Dates: start: 20080526, end: 20080707
  2. FLUOROURACIL [Concomitant]
     Dates: start: 20071105

REACTIONS (7)
  - ACTIVITIES OF DAILY LIVING IMPAIRED [None]
  - ANAEMIA [None]
  - DISEASE PROGRESSION [None]
  - DYSURIA [None]
  - MUSCULOSKELETAL STIFFNESS [None]
  - POLYNEUROPATHY [None]
  - PROCTALGIA [None]
